FAERS Safety Report 4824659-X (Version None)
Quarter: 2005Q4

REPORT INFORMATION
  Report Type: 
  Country: None (occurrence: None)
  Receive Date: 20051110
  Receipt Date: 20051102
  Transmission Date: 20060501
  Serious: Yes (Life-Threatening, Other)
  Sender: FDA-Public Use
  Company Number: FR-JNJFOC-20050904697

PATIENT
  Age: 34 Year
  Sex: Female

DRUGS (3)
  1. REMICADE [Suspect]
     Dosage: LAST INFUSION
     Route: 042
  2. REMICADE [Suspect]
     Route: 042
  3. REMICADE [Suspect]
     Indication: CROHN'S DISEASE
     Dosage: 1ST INFUSION
     Route: 042

REACTIONS (7)
  - CEREBELLAR SYNDROME [None]
  - EPILEPSY [None]
  - INFLAMMATION [None]
  - MULTIPLE SCLEROSIS [None]
  - NEOPLASM [None]
  - NERVOUS SYSTEM DISORDER [None]
  - VASCULITIS [None]
